FAERS Safety Report 16285136 (Version 1)
Quarter: 2019Q2

REPORT INFORMATION
  Report Type: Spontaneous
  Country: MT (occurrence: MT)
  Receive Date: 20190508
  Receipt Date: 20190508
  Transmission Date: 20190711
  Serious: Yes (Hospitalization, Other)
  Sender: FDA-Public Use
  Company Number: MT-ASTRAZENECA-2019SE67402

PATIENT
  Age: 80 Year
  Sex: Female

DRUGS (5)
  1. OMEPRAZOLE. [Suspect]
     Active Substance: OMEPRAZOLE
     Indication: HELICOBACTER INFECTION
     Route: 048
  2. DIGOXIN. [Interacting]
     Active Substance: DIGOXIN
     Indication: HEART RATE ABNORMAL
     Route: 065
  3. AMOXICILLIN. [Suspect]
     Active Substance: AMOXICILLIN
     Indication: HELICOBACTER INFECTION
     Route: 065
  4. WARFARIN [Concomitant]
     Active Substance: WARFARIN
     Indication: HEART RATE ABNORMAL
     Dosage: UNK
  5. CLARITHROMYCIN. [Interacting]
     Active Substance: CLARITHROMYCIN
     Indication: HELICOBACTER INFECTION
     Route: 065

REACTIONS (4)
  - Acute kidney injury [Unknown]
  - Toxicity to various agents [Unknown]
  - Drug interaction [Unknown]
  - Hyperkalaemia [Unknown]
